FAERS Safety Report 9305363 (Version 1)
Quarter: 2013Q2

REPORT INFORMATION
  Report Type: Spontaneous
  Country: US (occurrence: None)
  Receive Date: 20130522
  Receipt Date: 20130522
  Transmission Date: 20140414
  Serious: Yes (Hospitalization)
  Sender: FDA-Public Use
  Company Number: None

PATIENT
  Age: 7 Year
  Sex: Male
  Weight: 23.1 kg

DRUGS (1)
  1. LEVOFLOXACIN [Suspect]

REACTIONS (7)
  - Myeloproliferative disorder [None]
  - Myelodysplastic syndrome [None]
  - Renal failure acute [None]
  - Post transplant lymphoproliferative disorder [None]
  - Capillary leak syndrome [None]
  - Pancytopenia [None]
  - Mucosal inflammation [None]
